FAERS Safety Report 7048405-7 (Version None)
Quarter: 2010Q4

REPORT INFORMATION
  Report Type: 
  Country: None (occurrence: None)
  Receive Date: 20101014
  Receipt Date: 20101014
  Transmission Date: 20110411
  Serious: Yes (Hospitalization)
  Sender: FDA-Public Use
  Company Number: None

PATIENT
  Age: 17 Year
  Sex: Female
  Weight: 94.8018 kg

DRUGS (3)
  1. SUMATRIPTAN SUCCINATE [Suspect]
     Indication: MIGRAINE
     Dosage: 1 TABLET PRN, PO
     Route: 048
     Dates: start: 20101006, end: 20101006
  2. TOPAMAX [Concomitant]
  3. LEVONORGESTREL AND ETHINYL ESTRADIOL [Concomitant]

REACTIONS (3)
  - DRUG HYPERSENSITIVITY [None]
  - MIGRAINE [None]
  - PRODUCT SUBSTITUTION ISSUE [None]
